FAERS Safety Report 16571919 (Version 1)
Quarter: 2019Q3

REPORT INFORMATION
  Report Type: Spontaneous
  Country: US (occurrence: US)
  Receive Date: 20190714
  Receipt Date: 20190714
  Transmission Date: 20191004
  Serious: Yes (Death)
  Sender: FDA-Public Use
  Company Number: None

PATIENT
  Sex: Male
  Weight: 120.15 kg

DRUGS (1)
  1. JARDIANCE [Suspect]
     Active Substance: EMPAGLIFLOZIN
     Indication: DIABETES MELLITUS
     Route: 048

REACTIONS (12)
  - Urinary tract infection [None]
  - Vomiting [None]
  - Nephrolithiasis [None]
  - Diarrhoea [None]
  - Anal incontinence [None]
  - Confusional state [None]
  - Perineal pain [None]
  - Urinary incontinence [None]
  - Loss of consciousness [None]
  - Nausea [None]
  - Hallucination [None]
  - Aggression [None]
